FAERS Safety Report 6135448-0 (Version None)
Quarter: 2009Q1

REPORT INFORMATION
  Report Type: 
  Country: None (occurrence: None)
  Receive Date: 20090327
  Receipt Date: 20090325
  Transmission Date: 20090719
  Serious: Yes (Life-Threatening, Hospitalization)
  Sender: FDA-Public Use
  Company Number: A0705530A

PATIENT
  Sex: Male
  Weight: 90 kg

DRUGS (5)
  1. ROSIGLITAZONE [Suspect]
     Dosage: 8MG PER DAY
     Route: 048
     Dates: start: 20070705
  2. GALANTAMINE HYDROBROMIDE [Concomitant]
     Dosage: 8MG PER DAY
     Route: 048
     Dates: start: 20030101
  3. LOVAZA [Concomitant]
     Indication: SUPPLEMENTATION THERAPY
     Dosage: 1G PER DAY
     Route: 048
     Dates: start: 20070101
  4. ASCORBIC ACID [Concomitant]
     Indication: SUPPLEMENTATION THERAPY
     Dosage: 1G PER DAY
     Route: 048
     Dates: start: 19800101
  5. FOLIC ACID [Concomitant]
     Indication: SUPPLEMENTATION THERAPY
     Dosage: 5MG PER DAY
     Route: 048
     Dates: start: 20070101

REACTIONS (3)
  - AORTIC STENOSIS [None]
  - ATRIAL FIBRILLATION [None]
  - MYOCARDIAL INFARCTION [None]
